FAERS Safety Report 9044274 (Version 1)
Quarter: 2013Q1

REPORT INFORMATION
  Report Type: Report from Study
  Country: US (occurrence: US)
  Receive Date: 20130131
  Receipt Date: 20130131
  Transmission Date: 20140127
  Serious: No
  Sender: FDA-Public Use
  Company Number: US-ABBOTT-12P-163-0989148-00

PATIENT
  Age: 53 Year
  Sex: Female
  Weight: 54.03 kg

DRUGS (11)
  1. HUMIRA [Suspect]
     Indication: PSORIASIS
     Route: 058
     Dates: start: 20120902, end: 20120902
  2. HUMIRA [Suspect]
     Indication: PSORIATIC ARTHROPATHY
     Route: 058
     Dates: start: 20120909
  3. FOLIC ACID [Concomitant]
     Indication: VITAMIN SUPPLEMENTATION
  4. PROTONIX [Concomitant]
     Indication: IMPAIRED GASTRIC EMPTYING
  5. PEPCID [Concomitant]
     Indication: IMPAIRED GASTRIC EMPTYING
  6. REGLAN [Concomitant]
     Indication: IMPAIRED GASTRIC EMPTYING
  7. BIOTIN [Concomitant]
     Indication: SUPPLEMENTATION THERAPY
  8. MAGNESIUM [Concomitant]
     Indication: SUPPLEMENTATION THERAPY
  9. LEXAPRO [Concomitant]
     Indication: HOT FLUSH
  10. CALCIUM [Concomitant]
     Indication: SUPPLEMENTATION THERAPY
  11. ZINC [Concomitant]
     Indication: SUPPLEMENTATION THERAPY

REACTIONS (6)
  - Injection site bruising [Not Recovered/Not Resolved]
  - Injection site erythema [Recovered/Resolved]
  - Injection site haemorrhage [Recovered/Resolved]
  - Injection site pain [Not Recovered/Not Resolved]
  - Injection site nodule [Not Recovered/Not Resolved]
  - Injection site pain [Not Recovered/Not Resolved]
